FAERS Safety Report 8836874 (Version 1)
Quarter: 2012Q4

REPORT INFORMATION
  Report Type: Spontaneous
  Country: DK (occurrence: None)
  Receive Date: 20121010
  Receipt Date: 20121010
  Transmission Date: 20130627
  Serious: Yes (Hospitalization)
  Sender: FDA-Public Use
  Company Number: 2012MA012059

PATIENT
  Age: 63 Year
  Sex: Male

DRUGS (3)
  1. NAPROXEN DELAYED RELEASE [Suspect]
     Route: 048
     Dates: start: 201207, end: 201208
  2. RANITIDINE [Concomitant]
  3. DICLOFENAC [Concomitant]

REACTIONS (3)
  - Upper gastrointestinal haemorrhage [None]
  - Blood urea increased [None]
  - Haemoglobin decreased [None]
